FAERS Safety Report 8294077-3 (Version None)
Quarter: 2012Q2

REPORT INFORMATION
  Report Type: 
  Country: None (occurrence: None)
  Receive Date: 20120418
  Receipt Date: 20120412
  Transmission Date: 20120825
  Serious: Yes (Hospitalization)
  Sender: FDA-Public Use
  Company Number: ES-SANOFI-AVENTIS-2012SA025655

PATIENT
  Age: 68 Year
  Sex: Male

DRUGS (6)
  1. PRAVASTATIN [Concomitant]
     Indication: HYPERCHOLESTEROLAEMIA
     Route: 048
  2. GLYBURIDE [Concomitant]
     Indication: TYPE 2 DIABETES MELLITUS
     Route: 048
  3. ISOSORBIDE MONONITRATE [Concomitant]
     Indication: ANGINA PECTORIS
     Route: 048
  4. ATENOLOL AND CHLORTHALIDONE [Suspect]
     Indication: PROPHYLAXIS
     Route: 048
     Dates: start: 20110101, end: 20120316
  5. ENALAPRIL MALEATE [Concomitant]
     Indication: HYPERTENSION
     Route: 048
  6. AMIODARONE HCL [Concomitant]
     Indication: ARRHYTHMIA
     Route: 048

REACTIONS (1)
  - ANAEMIA [None]
